FAERS Safety Report 9049777 (Version 1)
Quarter: 2013Q1

REPORT INFORMATION
  Report Type: Spontaneous
  Country: US (occurrence: US)
  Receive Date: 20130205
  Receipt Date: 20130205
  Transmission Date: 20140127
  Serious: Yes (Hospitalization)
  Sender: FDA-Public Use
  Company Number: US-BAYER-2013-014450

PATIENT
  Age: 37 Year
  Sex: Female

DRUGS (2)
  1. YASMIN [Suspect]
  2. ZOLOFT [Concomitant]
     Dosage: 50 MG, UNK
     Route: 048

REACTIONS (2)
  - Deep vein thrombosis [None]
  - Pelvic venous thrombosis [None]
